FAERS Safety Report 20713992 (Version 6)
Quarter: 2024Q4

REPORT INFORMATION
  Report Type: Report from Study
  Country: DE (occurrence: DE)
  Receive Date: 20220415
  Receipt Date: 20241107
  Transmission Date: 20250115
  Serious: No
  Sender: ROCHE
  Company Number: DE-ROCHE-2592614

PATIENT
  Age: 45 Year
  Sex: Female

DRUGS (5)
  1. OCREVUS [Suspect]
     Active Substance: OCRELIZUMAB
     Indication: Relapsing-remitting multiple sclerosis
     Dosage: FREQUENCY: 183 DAYS, 223 DAYS
     Route: 042
     Dates: start: 20190813
  2. OCREVUS [Suspect]
     Active Substance: OCRELIZUMAB
     Route: 042
     Dates: start: 20200211
  3. OCREVUS [Suspect]
     Active Substance: OCRELIZUMAB
     Dosage: FREQUENCY: 183 DAYS?MOST RECENT DOSE ON 22-NOV-2022
     Route: 042
     Dates: start: 20200804
  4. COMIRNATY (TOZINAMERAN) [Suspect]
     Active Substance: TOZINAMERAN
     Indication: COVID-19 prophylaxis
     Dosage: FIRST DOSE
     Route: 065
  5. COMIRNATY (TOZINAMERAN) [Suspect]
     Active Substance: TOZINAMERAN
     Route: 065
     Dates: start: 202107, end: 202107

REACTIONS (12)
  - Fatigue [Recovered/Resolved]
  - Dry skin [Recovering/Resolving]
  - Nasopharyngitis [Recovered/Resolved]
  - Chest discomfort [Not Recovered/Not Resolved]
  - Thyroid hormones increased [Recovered/Resolved]
  - Headache [Recovered/Resolved]
  - Pyrexia [Recovered/Resolved]
  - Pain in extremity [Recovered/Resolved]
  - COVID-19 [Recovered/Resolved]
  - Lymphocyte count decreased [Recovered/Resolved]
  - Acne [Not Recovered/Not Resolved]
  - Malaise [Recovered/Resolved]

NARRATIVE: CASE EVENT DATE: 20200101
